FAERS Safety Report 17112167 (Version 2)
Quarter: 2019Q4

REPORT INFORMATION
  Report Type: Spontaneous
  Country: PT (occurrence: PT)
  Receive Date: 20191204
  Receipt Date: 20191220
  Transmission Date: 20200122
  Serious: Yes (Other)
  Sender: FDA-Public Use
  Company Number: PT-ALLERGAN-1949450US

PATIENT
  Sex: Female

DRUGS (4)
  1. BOTULINUM TOXIN TYPE A UNK [Suspect]
     Active Substance: BOTULINUM TOXIN TYPE A
     Indication: SKIN WRINKLING
     Dosage: UNK, SINGLE
     Route: 065
  2. RESTYLANE [Suspect]
     Active Substance: HYALURONIC ACID
     Indication: SKIN WRINKLING
     Dosage: FIRST 0.5 FILLER, TOO MUCH 0.9 FILLER IN LOWER LIPS 1.0 ML FILLER ALL USED ON BOTTOM LIPS
     Route: 065
     Dates: start: 20191113
  3. BOTULINUM TOXIN TYPE A UNK [Suspect]
     Active Substance: BOTULINUM TOXIN TYPE A
     Indication: SKIN WRINKLING
     Dosage: UNK, SINGLE
     Route: 065
  4. BOTULINUM TOXIN TYPE A UNK [Suspect]
     Active Substance: BOTULINUM TOXIN TYPE A
     Indication: OFF LABEL USE
     Dosage: UNK, SINGLE
     Route: 065
     Dates: start: 20191030, end: 20191030

REACTIONS (12)
  - Injection site haematoma [Not Recovered/Not Resolved]
  - Neuromuscular pain [Not Recovered/Not Resolved]
  - Neck pain [Not Recovered/Not Resolved]
  - Lip disorder [Not Recovered/Not Resolved]
  - Paralysis [Not Recovered/Not Resolved]
  - Muscle tightness [Not Recovered/Not Resolved]
  - Pain [Unknown]
  - Skin burning sensation [Unknown]
  - Facial asymmetry [Not Recovered/Not Resolved]
  - Swelling [Not Recovered/Not Resolved]
  - Off label use [Unknown]
  - Contusion [Not Recovered/Not Resolved]

NARRATIVE: CASE EVENT DATE: 2019
